FAERS Safety Report 12471746 (Version 1)
Quarter: 2016Q2

REPORT INFORMATION
  Report Type: Spontaneous
  Country: US (occurrence: None)
  Receive Date: 20160615
  Receipt Date: 20160615
  Transmission Date: 20160815
  Serious: Yes (Hospitalization)
  Sender: FDA-Public Use
  Company Number: None

PATIENT
  Age: 78 Year
  Sex: Male
  Weight: 110.5 kg

DRUGS (8)
  1. THEO-DUR [Concomitant]
     Active Substance: THEOPHYLLINE ANHYDROUS
  2. PREDNISONE. [Suspect]
     Active Substance: PREDNISONE
     Indication: PNEUMONIA
     Dosage: DATE OF USE: RECENT
     Route: 048
  3. K-DUR [Concomitant]
     Active Substance: POTASSIUM CHLORIDE
  4. LEVAQUIN [Suspect]
     Active Substance: LEVOFLOXACIN
     Indication: PNEUMONIA
     Dosage: DATE OF USE: RECENT
     Route: 048
  5. ASA [Concomitant]
     Active Substance: ASPIRIN
  6. LASIS [Concomitant]
  7. ADVAIR DISKUS [Concomitant]
     Active Substance: FLUTICASONE PROPIONATE\SALMETEROL XINAFOATE
  8. ALLOPURINOL. [Concomitant]
     Active Substance: ALLOPURINOL

REACTIONS (3)
  - Hallucination [None]
  - Confusional state [None]
  - Abnormal dreams [None]

NARRATIVE: CASE EVENT DATE: 20151124
